FAERS Safety Report 9330312 (Version 5)
Quarter: 2013Q3

REPORT INFORMATION
  Report Type: Report from Study
  Country: US (occurrence: US)
  Receive Date: 20130605
  Receipt Date: 20130719
  Transmission Date: 20140515
  Serious: Yes (Hospitalization, Other)
  Sender: FDA-Public Use
  Company Number: US-ROCHE-1231960

PATIENT
  Age: 69 Year
  Sex: Female
  Weight: 86.71 kg

DRUGS (10)
  1. XOLAIR [Suspect]
     Indication: ASTHMA
     Route: 058
     Dates: start: 20130417, end: 20130603
  2. XOLAIR [Suspect]
     Indication: CHRONIC OBSTRUCTIVE PULMONARY DISEASE
     Route: 058
     Dates: start: 20130422
  3. XOLAIR [Suspect]
     Route: 058
  4. LEVOTHYROXINE [Concomitant]
     Indication: HYPOTHYROIDISM
     Route: 048
     Dates: start: 1998
  5. LEVOTHYROXINE [Concomitant]
     Route: 048
     Dates: start: 2011
  6. SYMBICORT [Concomitant]
     Indication: ASTHMA
     Dosage: 2 PUFFS IN THE AM, 2 PUFFS IN THE PM, 160/4.5 MCG
     Route: 065
     Dates: start: 2008
  7. SPIRIVA [Concomitant]
     Indication: ASTHMA
     Dosage: 1 PUFF, INHALER
     Route: 065
     Dates: start: 2007
  8. ALBUTEROL [Concomitant]
     Indication: ASTHMA
     Dosage: 2 PUFFS AS NEEDED
     Route: 065
     Dates: start: 1980
  9. AVALOX [Concomitant]
     Route: 042
     Dates: start: 20130622
  10. MUCINEX [Concomitant]
     Route: 048
     Dates: start: 20130622

REACTIONS (18)
  - Pyrexia [Recovered/Resolved]
  - Dyspnoea [Not Recovered/Not Resolved]
  - Herpes zoster [Unknown]
  - Asthenia [Not Recovered/Not Resolved]
  - Increased upper airway secretion [Not Recovered/Not Resolved]
  - Pain [Not Recovered/Not Resolved]
  - Fatigue [Not Recovered/Not Resolved]
  - Paranasal sinus hypersecretion [Unknown]
  - Asthenia [Not Recovered/Not Resolved]
  - Headache [Recovered/Resolved]
  - Dyspepsia [Unknown]
  - Hunger [Unknown]
  - Insomnia [Unknown]
  - Weight increased [Unknown]
  - Fibromyalgia [Unknown]
  - Cough [Unknown]
  - Fatigue [Unknown]
  - Pain [Unknown]
